FAERS Safety Report 9740650 (Version 1)
Quarter: 2013Q4

REPORT INFORMATION
  Report Type: Spontaneous
  Country: US (occurrence: US)
  Receive Date: 20131209
  Receipt Date: 20131209
  Transmission Date: 20140711
  Serious: No
  Sender: FDA-Public Use
  Company Number: US-BIOGENIDEC-2013BI090017

PATIENT
  Age: 46 Year
  Sex: Female
  Weight: 65 kg

DRUGS (10)
  1. TECFIDERA [Suspect]
     Indication: MULTIPLE SCLEROSIS
  2. TECFIDERA [Suspect]
     Indication: MULTIPLE SCLEROSIS
     Route: 048
     Dates: start: 20130831, end: 20130906
  3. TECFIDERA [Suspect]
     Indication: MULTIPLE SCLEROSIS
     Route: 048
     Dates: start: 20130907
  4. PANTOPRAZOLE [Concomitant]
  5. FEXOFENADINE [Concomitant]
  6. ZOMIG [Concomitant]
  7. LOESTRIN FE [Concomitant]
  8. VITAMIN D3 [Concomitant]
  9. CULTURELLE [Concomitant]
  10. BABY ASPIRIN [Concomitant]

REACTIONS (5)
  - Gastrooesophageal reflux disease [Unknown]
  - Rash [Not Recovered/Not Resolved]
  - Dyspepsia [Not Recovered/Not Resolved]
  - Flushing [Not Recovered/Not Resolved]
  - Abdominal discomfort [Unknown]
